FAERS Safety Report 4326402-X (Version None)
Quarter: 2004Q1

REPORT INFORMATION
  Report Type: 
  Country: None (occurrence: None)
  Receive Date: 20040325
  Receipt Date: 20030918
  Transmission Date: 20041129
  Serious: No
  Sender: FDA-Public Use
  Company Number: US048501

PATIENT
  Age: 53 Year
  Sex: Female

DRUGS (7)
  1. NEULASTA [Suspect]
     Indication: CHEMOTHERAPY
     Dates: start: 20030101
  2. CYCLOPHOSPHAMIDE [Concomitant]
  3. NEULASTA [Suspect]
     Indication: CHEMOTHERAPY
     Dates: start: 20030101
  4. CYCLOPHOSPHAMIDE [Concomitant]
  5. DOXORUBICIN HYDROCHLORIDE [Concomitant]
  6. VINCRISTINE SULFATE [Concomitant]
  7. PREDNISONE [Concomitant]

REACTIONS (2)
  - BONE PAIN [None]
  - INFLUENZA LIKE ILLNESS [None]
